FAERS Safety Report 13936932 (Version 1)
Quarter: 2017Q3

REPORT INFORMATION
  Report Type: Spontaneous
  Country: US (occurrence: US)
  Receive Date: 20170905
  Receipt Date: 20170905
  Transmission Date: 20171127
  Serious: No
  Sender: FDA-Public Use
  Company Number: US-BAYER-2017-159082

PATIENT
  Age: 58 Year
  Sex: Female
  Weight: 87.98 kg

DRUGS (1)
  1. ALEVE [Suspect]
     Active Substance: NAPROXEN SODIUM
     Indication: SCIATICA
     Dosage: UNK UNK, TID (1-2 EVERY 8 HOURS DAILY)
     Route: 048
     Dates: start: 20170814

REACTIONS (4)
  - Drug prescribing error [Unknown]
  - Product use issue [Unknown]
  - Product use in unapproved indication [Unknown]
  - Off label use [Unknown]

NARRATIVE: CASE EVENT DATE: 20170814
